FAERS Safety Report 4636257-1 (Version None)
Quarter: 2005Q2

REPORT INFORMATION
  Report Type: 
  Country: None (occurrence: None)
  Receive Date: 20050415
  Receipt Date: 20040329
  Transmission Date: 20051028
  Serious: No
  Sender: FDA-Public Use
  Company Number: US-BRISTOL-MYERS SQUIBB COMPANY-12545802

PATIENT
  Age: 42 Year
  Sex: Female
  Weight: 45 kg

DRUGS (5)
  1. CARBOPLATIN [Suspect]
     Indication: OVARIAN CANCER
     Route: 042
     Dates: start: 20040324, end: 20040324
  2. GEMZAR [Concomitant]
  3. ANZEMET [Concomitant]
     Indication: PREMEDICATION
     Route: 042
     Dates: start: 20040324, end: 20040324
  4. DECADRON [Concomitant]
     Indication: PREMEDICATION
     Route: 042
     Dates: start: 20040324, end: 20040324
  5. BENADRYL [Concomitant]
     Indication: PREMEDICATION
     Route: 042
     Dates: start: 20040324, end: 20040324

REACTIONS (2)
  - PRURITUS [None]
  - URTICARIA [None]
